FAERS Safety Report 14613998 (Version 1)
Quarter: 2018Q1

REPORT INFORMATION
  Report Type: Spontaneous
  Country: GB (occurrence: GB)
  Receive Date: 20180308
  Receipt Date: 20180308
  Transmission Date: 20180509
  Serious: Yes (Death, Hospitalization)
  Sender: FDA-Public Use
  Company Number: GB-PFIZER INC-2018097118

PATIENT
  Age: 35 Year
  Sex: Male

DRUGS (5)
  1. VALIUM NOVUM [Suspect]
     Active Substance: DIAZEPAM
     Dosage: UNK
  2. METHADONE [Suspect]
     Active Substance: METHADONE HYDROCHLORIDE
     Dosage: UNK
  3. HEROIN [Suspect]
     Active Substance: DIAMORPHINE
     Dosage: UNK
  4. PREGABALIN. [Suspect]
     Active Substance: PREGABALIN
     Dosage: UNK
  5. XANAX [Suspect]
     Active Substance: ALPRAZOLAM
     Dosage: UNK

REACTIONS (8)
  - Loss of consciousness [Fatal]
  - Feeling abnormal [Unknown]
  - Drug abuse [Fatal]
  - Oxygen consumption decreased [Fatal]
  - Fall [Unknown]
  - Counterfeit product administered [Fatal]
  - Drug dependence [Fatal]
  - Prescription drug used without a prescription [Fatal]
